FAERS Safety Report 5991731-0 (Version None)
Quarter: 2008Q4

REPORT INFORMATION
  Report Type: 
  Country: None (occurrence: None)
  Receive Date: 20081202
  Receipt Date: 20080416
  Transmission Date: 20090506
  Serious: Yes (Other)
  Sender: FDA-Public Use
  Company Number: WAES 0611USA06305

PATIENT
  Age: 61 Year
  Sex: Female
  Weight: 61.6892 kg

DRUGS (5)
  1. FOSAMAX [Suspect]
     Indication: OSTEOPOROSIS
     Dosage: 70 MG/WKY/PO
     Route: 048
     Dates: start: 20011109, end: 20060301
  2. FOSAMAX PLUS D [Suspect]
     Indication: OSTEOPOROSIS
     Dosage: 70MG/2800 IU/PO
     Route: 048
     Dates: start: 20060401, end: 20060705
  3. CALCIUM (UNSPECIFIED) [Concomitant]
  4. INFLUENZA VIRUS VACCINE (UNSPECI [Concomitant]
  5. VITAMINS (UNSPECIFIED) [Concomitant]

REACTIONS (16)
  - ANXIETY [None]
  - CHRONIC SINUSITIS [None]
  - DEPRESSION [None]
  - DIZZINESS [None]
  - DRY MOUTH [None]
  - HAEMOPTYSIS [None]
  - HEADACHE [None]
  - HYPOACUSIS [None]
  - INSOMNIA [None]
  - LARYNGITIS [None]
  - OSTEONECROSIS [None]
  - PHARYNGEAL HAEMORRHAGE [None]
  - SENSATION OF FOREIGN BODY [None]
  - TINNITUS [None]
  - TONGUE NEOPLASM [None]
  - VERTIGO [None]
